FAERS Safety Report 10241844 (Version 2)
Quarter: 2014Q2

REPORT INFORMATION
  Report Type: Spontaneous
  Country: US (occurrence: US)
  Receive Date: 20140617
  Receipt Date: 20140620
  Transmission Date: 20141212
  Serious: Yes (Other)
  Sender: FDA-Public Use
  Company Number: US-GLAXOSMITHKLINE-A1076572A

PATIENT
  Age: 81 Year
  Sex: Male

DRUGS (11)
  1. ADVAIR [Suspect]
     Indication: COUGH
     Dosage: 1PUFF TWICE PER DAY
     Route: 055
     Dates: start: 20140606, end: 20140609
  2. FINASTERIDE [Concomitant]
  3. LEVOTHYROXINE [Concomitant]
  4. ATENOLOL [Concomitant]
  5. ASPIRIN [Concomitant]
  6. OCUVITE [Concomitant]
  7. CENTRUM SILVER [Concomitant]
  8. TAMSULOSIN [Concomitant]
  9. SIMVASTATIN [Concomitant]
  10. OMEPRAZOLE [Concomitant]
  11. GLIMEPIRIDE [Concomitant]

REACTIONS (2)
  - Deafness unilateral [Recovering/Resolving]
  - Dysphonia [Not Recovered/Not Resolved]
